FAERS Safety Report 4380326-0 (Version None)
Quarter: 2004Q2

REPORT INFORMATION
  Report Type: 
  Country: None (occurrence: None)
  Receive Date: 20040614
  Receipt Date: 20040531
  Transmission Date: 20050107
  Serious: Yes (Hospitalization)
  Sender: FDA-Public Use
  Company Number: 04P-062-0262661-00

PATIENT
  Age: 34 Year
  Sex: Male
  Weight: 80 kg

DRUGS (1)
  1. AKINETON [Suspect]
     Indication: ACCIDENTAL EXPOSURE
     Dosage: 40 MG, PER ORAL
     Route: 048
     Dates: start: 20040530, end: 20040530

REACTIONS (4)
  - ACCIDENTAL EXPOSURE [None]
  - ACCIDENTAL OVERDOSE [None]
  - DRY MOUTH [None]
  - OVERDOSE [None]
